FAERS Safety Report 24069069 (Version 1)
Quarter: 2024Q3

REPORT INFORMATION
  Report Type: Report from Study
  Country: RO (occurrence: RO)
  Receive Date: 20240710
  Receipt Date: 20240710
  Transmission Date: 20241017
  Serious: No
  Sender: ROCHE
  Company Number: RO-ROCHE-3464376

PATIENT
  Age: 50 Year
  Sex: Female
  Weight: 65.0 kg

DRUGS (1)
  1. ALECENSA [Suspect]
     Active Substance: ALECTINIB HYDROCHLORIDE
     Indication: Lung neoplasm
     Route: 048

REACTIONS (2)
  - Memory impairment [Unknown]
  - Hypersensitivity [Unknown]
